FAERS Safety Report 5678395-0 (Version None)
Quarter: 2008Q1

REPORT INFORMATION
  Report Type: 
  Country: None (occurrence: None)
  Receive Date: 20080320
  Receipt Date: 20080312
  Transmission Date: 20080703
  Serious: Yes (Life-Threatening, Hospitalization, Other)
  Sender: FDA-Public Use
  Company Number: 151-21880-08020385

PATIENT
  Age: 61 Year
  Sex: Male

DRUGS (13)
  1. REVLIMID [Suspect]
     Indication: MYELOMA RECURRENCE
     Dosage: 25 MG, 1-0-0, DAY 1-21, ORAL
     Route: 048
     Dates: start: 20071112, end: 20071225
  2. DEXAMETHASONE TAB [Suspect]
     Indication: MYELOMA RECURRENCE
     Dates: start: 20071112, end: 20071225
  3. ADRIAMYCIN PFS [Suspect]
     Indication: MYELOMA RECURRENCE
     Dates: start: 20071112, end: 20071225
  4. DICLOFENAC SODIUM [Concomitant]
  5. ASPIRIN [Concomitant]
  6. PLAVIX [Concomitant]
  7. PRINIL (LISINOPRIL) [Concomitant]
  8. NEBIVOLOL HCL [Concomitant]
  9. ATORVASTATIN CALCIUM [Concomitant]
  10. TOREM (TORASEMIDE) [Concomitant]
  11. NEUPOGEN [Concomitant]
  12. BACTRIM [Concomitant]
  13. MOTILIUM LINGUAL (DOMPERIDONE) [Concomitant]

REACTIONS (4)
  - ARTERIAL STENOSIS [None]
  - BLINDNESS UNILATERAL [None]
  - CAROTID ARTERY THROMBOSIS [None]
  - EJECTION FRACTION DECREASED [None]
